FAERS Safety Report 5081723-0 (Version None)
Quarter: 2006Q3

REPORT INFORMATION
  Report Type: 
  Country: None (occurrence: None)
  Receive Date: 20060816
  Receipt Date: 20060308
  Transmission Date: 20061208
  Serious: Yes (Hospitalization, Disabling)
  Sender: FDA-Public Use
  Company Number: US-ROCHE-439571

PATIENT
  Age: 42 Year
  Sex: Female

DRUGS (2)
  1. PEGASYS [Suspect]
     Route: 058
     Dates: start: 20051111, end: 20060324
  2. RIBAVIRIN [Suspect]
     Route: 048
     Dates: start: 20051111, end: 20060324

REACTIONS (6)
  - ERYTHEMA NODOSUM [None]
  - GRANULOMA [None]
  - NODULE [None]
  - SARCOIDOSIS [None]
  - UVEITIS [None]
  - VASCULITIS [None]
